FAERS Safety Report 8094186-8 (Version None)
Quarter: 2012Q1

REPORT INFORMATION
  Report Type: 
  Country: None (occurrence: None)
  Receive Date: 20120130
  Receipt Date: 20120130
  Transmission Date: 20120608
  Serious: Yes (Life-Threatening, Other)
  Sender: FDA-Public Use
  Company Number: None

PATIENT
  Age: 46 Year
  Sex: Female
  Weight: 72.574 kg

DRUGS (1)
  1. EFFEXOR XR [Suspect]
     Indication: ANXIETY
     Dosage: 150 MG
     Route: 048
     Dates: start: 20100701, end: 20110710

REACTIONS (5)
  - DEPRESSION [None]
  - WEIGHT INCREASED [None]
  - BREAST ENLARGEMENT [None]
  - ADRENAL INSUFFICIENCY [None]
  - AMNESIA [None]
